FAERS Safety Report 25172666 (Version 2)
Quarter: 2025Q2

REPORT INFORMATION
  Report Type: Spontaneous
  Country: BR (occurrence: BR)
  Receive Date: 20250408
  Receipt Date: 20250418
  Transmission Date: 20250717
  Serious: Yes (Death, Other)
  Sender: TAKEDA
  Company Number: BR-TAKEDA-2025TUS034167

PATIENT
  Sex: Male

DRUGS (1)
  1. LIVTENCITY [Suspect]
     Active Substance: MARIBAVIR
     Indication: Product used for unknown indication

REACTIONS (1)
  - Death [Fatal]
